FAERS Safety Report 4504692-8 (Version None)
Quarter: 2004Q3

REPORT INFORMATION
  Report Type: 
  Country: None (occurrence: None)
  Receive Date: 20040927
  Receipt Date: 20040712
  Transmission Date: 20050211
  Serious: No
  Sender: FDA-Public Use
  Company Number: USA040772427

PATIENT
  Sex: Female

DRUGS (6)
  1. STRATTERA [Suspect]
     Dosage: 40 MG DAY
     Dates: start: 20040101
  2. EFFEXOR [Concomitant]
  3. NEURONTIN [Concomitant]
  4. SEROQUEL [Concomitant]
     Dosage: 40 MG DAY
     Dates: start: 20040101
  5. . [Concomitant]
  6. NEURONTIN [Concomitant]

REACTIONS (1)
  - ALOPECIA [None]
